FAERS Safety Report 22789234 (Version 3)
Quarter: 2024Q1

REPORT INFORMATION
  Report Type: Report from Study
  Country: US (occurrence: US)
  Receive Date: 20230804
  Receipt Date: 20240319
  Transmission Date: 20240410
  Serious: Yes (Hospitalization)
  Sender: FDA-Public Use
  Company Number: US-TEVA-2023-US-2900125

PATIENT
  Age: 18 Year
  Sex: Male
  Weight: 71 kg

DRUGS (16)
  1. METHOTREXATE [Suspect]
     Active Substance: METHOTREXATE
     Indication: Acute lymphocytic leukaemia
     Route: 048
     Dates: start: 20211214, end: 20230530
  2. CYCLOPHOSPHAMIDE [Suspect]
     Active Substance: CYCLOPHOSPHAMIDE
     Indication: Acute lymphocytic leukaemia
     Dosage: DOSAGE TEXT: ONCE
     Route: 042
     Dates: start: 20211214
  3. CYTARABINE [Suspect]
     Active Substance: CYTARABINE
     Indication: Acute lymphocytic leukaemia
     Dosage: DOSAGE TEXT: D36-39
     Route: 042
     Dates: start: 20211214
  4. MERCAPTOPURINE [Suspect]
     Active Substance: MERCAPTOPURINE
     Indication: Acute lymphocytic leukaemia
     Route: 048
     Dates: start: 20211214, end: 20230530
  5. VINCRISTINE [Suspect]
     Active Substance: VINCRISTINE
     Indication: Acute lymphocytic leukaemia
     Route: 042
     Dates: start: 20211214
  6. PEGASPARGASE [Suspect]
     Active Substance: PEGASPARGASE
     Indication: Acute lymphocytic leukaemia
     Dosage: DOSAGE TEXT: 3750 IU D2,22 IM2
     Route: 042
     Dates: start: 20211215
  7. METHOTREXATE [Suspect]
     Active Substance: METHOTREXATE
     Indication: Acute lymphocytic leukaemia
     Route: 037
     Dates: start: 20220301
  8. LEUCOVORIN [Suspect]
     Active Substance: LEUCOVORIN\LEUCOVORIN CALCIUM
     Indication: Acute lymphocytic leukaemia
     Dosage: DOSAGE TEXT: D45-46
     Route: 065
     Dates: start: 20220301
  9. DEXAMETHASONE [Suspect]
     Active Substance: DEXAMETHASONE
     Indication: Acute lymphocytic leukaemia
     Route: 048
     Dates: start: 20220524
  10. DOXORUBICIN [Suspect]
     Active Substance: DOXORUBICIN
     Indication: Acute lymphocytic leukaemia
     Dosage: DOSAGE TEXT: 48 MILLIGRAM, ONCE ON DAYS 1, 8, 15 OD, DI
     Route: 042
     Dates: start: 20220524, end: 20220607
  11. THIOGUANINE [Suspect]
     Active Substance: THIOGUANINE
     Indication: Acute lymphocytic leukaemia
     Dosage: DOSAGE TEXT: 40 MG 3 TABS QD FOR 5 DAYS AND 2.5 TABS QD FOR 2 DAYS PER WEEK ON DAYS 29-42 OF DI; ...
     Route: 048
     Dates: start: 20220628, end: 20220711
  12. THIOGUANINE [Suspect]
     Active Substance: THIOGUANINE
     Indication: Acute lymphocytic leukaemia
     Dosage: DOSAGE TEXT: 40 MG 3 TABS QD FOR 5 DAYS AND 2.5 TABS QD FOR 2 DAYS PER WEEK ON DAYS 29-42 OF DI; ...
     Route: 048
     Dates: start: 20220628, end: 20220711
  13. METHOTREXATE [Suspect]
     Active Substance: METHOTREXATE
     Indication: Acute lymphocytic leukaemia
     Dosage: DOSAGE TEXT: 9335 MILLIGRAM (D1, 15, 29, 43 OF IM1)
     Route: 042
     Dates: start: 20220301, end: 20220427
  14. SULFAMETHOXAZOLE\TRIMETHOPRIM [Concomitant]
     Active Substance: SULFAMETHOXAZOLE\TRIMETHOPRIM
     Indication: Product used for unknown indication
     Route: 065
  15. ISAVUCONAZONIUM [Concomitant]
     Active Substance: ISAVUCONAZONIUM
     Indication: Product used for unknown indication
     Route: 065
  16. LINEZOLID [Concomitant]
     Active Substance: LINEZOLID
     Dates: start: 20230601

REACTIONS (13)
  - Neutropenia [Recovered/Resolved]
  - Oxygen saturation [Recovered/Resolved]
  - Wound infection [Recovered/Resolved]
  - Hypokalaemia [Recovered/Resolved]
  - Sepsis [Recovered/Resolved]
  - Thrombocytopenia [Recovered/Resolved]
  - Anaemia [Recovered/Resolved]
  - Pyrexia [Recovered/Resolved]
  - Dyspnoea [Recovered/Resolved]
  - Pharyngitis streptococcal [Recovered/Resolved]
  - Scrotal oedema [Recovered/Resolved]
  - Skin lesion [Recovered/Resolved]
  - Septic shock [Recovered/Resolved]

NARRATIVE: CASE EVENT DATE: 20230530
